FAERS Safety Report 6606780-9 (Version None)
Quarter: 2010Q1

REPORT INFORMATION
  Report Type: 
  Country: None (occurrence: None)
  Receive Date: 20100226
  Receipt Date: 20090205
  Transmission Date: 20100710
  Serious: No
  Sender: FDA-Public Use
  Company Number: US-ALLERGAN-0901438US

PATIENT
  Age: 82 Year
  Sex: Female

DRUGS (1)
  1. BOTOX [Suspect]
     Indication: MUSCLE SPASMS
     Dosage: 100 UNITS, UNK
     Route: 030
     Dates: start: 20090121, end: 20090121

REACTIONS (1)
  - DRUG INEFFECTIVE [None]
